FAERS Safety Report 10595306 (Version 1)
Quarter: 2014Q4

REPORT INFORMATION
  Report Type: Spontaneous
  Country: AE (occurrence: None)
  Receive Date: 20141119
  Receipt Date: 20141119
  Transmission Date: 20150529
  Serious: Yes (Disabling)
  Sender: FDA-Public Use
  Company Number: None

PATIENT
  Age: 38 Year
  Sex: Female

DRUGS (3)
  1. DOTAREM [Suspect]
     Active Substance: GADOTERATE MEGLUMINE
     Indication: TREMOR
     Dosage: 1 TIME APPLICATION INTO A VEIN
  2. DOTAREM [Suspect]
     Active Substance: GADOTERATE MEGLUMINE
     Indication: NUCLEAR MAGNETIC RESONANCE IMAGING BRAIN
     Dosage: 1 TIME APPLICATION INTO A VEIN
  3. DOTAREM [Suspect]
     Active Substance: GADOTERATE MEGLUMINE
     Indication: SCAN WITH CONTRAST
     Dosage: 1 TIME APPLICATION INTO A VEIN

REACTIONS (7)
  - Muscular weakness [None]
  - Hypoaesthesia [None]
  - Contrast media reaction [None]
  - Post procedural complication [None]
  - Disturbance in attention [None]
  - Head discomfort [None]
  - Breast inflammation [None]

NARRATIVE: CASE EVENT DATE: 20140814
